FAERS Safety Report 4470514-7 (Version None)
Quarter: 2004Q4

REPORT INFORMATION
  Report Type: 
  Country: None (occurrence: None)
  Receive Date: 20041005
  Receipt Date: 20041005
  Transmission Date: 20050328
  Serious: Yes (Hospitalization)
  Sender: FDA-Public Use
  Company Number: None

PATIENT
  Sex: Male

DRUGS (20)
  1. LISINOPRIL [Suspect]
     Indication: CARDIAC FAILURE CONGESTIVE
     Dosage: 20 MG DAILY ORAL
     Route: 048
  2. METOPROLOL [Concomitant]
  3. FUROSEMIDE [Concomitant]
  4. METOLAZONE [Concomitant]
  5. DOCUSATE [Concomitant]
  6. SIMVASTATIN [Concomitant]
  7. WARFARIN SODIUM [Concomitant]
  8. NICOTINE [Concomitant]
  9. INSULIN [Concomitant]
  10. COMBIVENT [Concomitant]
  11. ALBUTEROL [Concomitant]
  12. FORMATEROL [Concomitant]
  13. FLUNISOLIDE IHN [Concomitant]
  14. B12 [Concomitant]
  15. PYRIDOXINE [Concomitant]
  16. FOLIC ACID [Concomitant]
  17. FESO4 [Concomitant]
  18. GABAPENTIN [Concomitant]
  19. IMDUR [Concomitant]
  20. KCL TAB [Concomitant]

REACTIONS (1)
  - RENAL FAILURE ACUTE [None]
